FAERS Safety Report 7409038-3 (Version None)
Quarter: 2011Q1

REPORT INFORMATION
  Report Type: 
  Country: None (occurrence: None)
  Receive Date: 20110301
  Receipt Date: 20101215
  Transmission Date: 20110831
  Serious: Yes (Hospitalization, Other)
  Sender: FDA-Public Use
  Company Number: RB-19559-2010

PATIENT
  Age: 41 Year
  Sex: Male

DRUGS (2)
  1. SUBOXONE [Suspect]
     Indication: DRUG DEPENDENCE
     Dosage: (8 MG TID SUBLINGUAL), (8 MG TID SUBLINGUAL)
     Route: 060
     Dates: start: 20101001
  2. SUBOXONE [Suspect]
     Indication: DRUG DEPENDENCE
     Dosage: (8 MG TID SUBLINGUAL), (8 MG TID SUBLINGUAL)
     Route: 060
     Dates: start: 20090101, end: 20100901

REACTIONS (3)
  - FALL [None]
  - FIBULA FRACTURE [None]
  - PAIN IN EXTREMITY [None]
